FAERS Safety Report 9498643 (Version 1)
Quarter: 2013Q3

REPORT INFORMATION
  Report Type: Spontaneous
  Country: US (occurrence: US)
  Receive Date: 20130904
  Receipt Date: 20130904
  Transmission Date: 20140515
  Serious: No
  Sender: FDA-Public Use
  Company Number: US-TEVA-429409USA

PATIENT
  Age: 67 Year
  Sex: Female

DRUGS (2)
  1. TRISENOX [Suspect]
  2. ATRA [Suspect]

REACTIONS (1)
  - Rash pruritic [Unknown]
